FAERS Safety Report 9702491 (Version 3)
Quarter: 2014Q2

REPORT INFORMATION
  Report Type: Spontaneous
  Country: US (occurrence: US)
  Receive Date: 20131121
  Receipt Date: 20140516
  Transmission Date: 20141212
  Serious: Yes (Hospitalization)
  Sender: FDA-Public Use
  Company Number: US-B.I. PHARMACEUTICALS,INC./RIDGEFIELD-2013-BI-37675BP

PATIENT
  Sex: Male
  Weight: 97.52 kg

DRUGS (7)
  1. PRADAXA [Suspect]
     Indication: ATRIAL FIBRILLATION
     Dosage: 300 MG
     Route: 065
     Dates: start: 20110311, end: 20110526
  2. PRADAXA [Suspect]
     Indication: ANTICOAGULANT THERAPY
  3. AMIDARONE [Concomitant]
     Route: 065
  4. NORVASC [Concomitant]
     Route: 065
  5. SIMVASTATIN [Concomitant]
     Route: 065
  6. ECOTRIN [Concomitant]
     Route: 065
  7. SPIRONOLACTONE [Concomitant]
     Route: 065

REACTIONS (2)
  - Haemorrhagic anaemia [Unknown]
  - Gastrointestinal haemorrhage [Unknown]
